FAERS Safety Report 19702027 (Version 2)
Quarter: 2021Q3

REPORT INFORMATION
  Report Type: Report from Study
  Country: None (occurrence: US)
  Receive Date: 20210813
  Receipt Date: 20210818
  Transmission Date: 20211014
  Serious: Yes (Hospitalization)
  Sender: FDA-Public Use
  Company Number: US-ABBVIE-21K-163-4032665-00

PATIENT
  Age: 61 Year
  Sex: Female
  Weight: 94.43 kg

DRUGS (2)
  1. RINVOQ [Suspect]
     Active Substance: UPADACITINIB
     Indication: RHEUMATOID ARTHRITIS
     Route: 048
     Dates: start: 2019, end: 20210724
  2. RINVOQ [Suspect]
     Active Substance: UPADACITINIB
     Indication: NEOPLASM
     Route: 048
     Dates: start: 202108

REACTIONS (5)
  - Pulmonary congestion [Recovering/Resolving]
  - COVID-19 [Recovering/Resolving]
  - Vomiting [Unknown]
  - Malaise [Unknown]
  - Off label use [Not Recovered/Not Resolved]

NARRATIVE: CASE EVENT DATE: 2019
